FAERS Safety Report 21947319 (Version 6)
Quarter: 2023Q2

REPORT INFORMATION
  Report Type: Other
  Country: NL (occurrence: None)
  Receive Date: 20230202
  Receipt Date: 20230419
  Transmission Date: 20230722
  Serious: No
  Sender: FDA-Public Use
  Company Number: NL-ROCHE-2533437

PATIENT
  Age: 48 Year
  Sex: Female
  Weight: 60 kg

DRUGS (44)
  1. OCRELIZUMAB [Suspect]
     Active Substance: OCRELIZUMAB
     Indication: Relapsing-remitting multiple sclerosis
     Dosage: 300MG/ 250 ML?FURTHER DOSE RECEIVED ON 01/AUG/2019
     Route: 042
     Dates: start: 20190719, end: 20190801
  2. OCRELIZUMAB [Suspect]
     Active Substance: OCRELIZUMAB
     Route: 042
     Dates: start: 20200716, end: 20200716
  3. OCRELIZUMAB [Suspect]
     Active Substance: OCRELIZUMAB
     Route: 042
     Dates: start: 20200117, end: 20200117
  4. OCRELIZUMAB [Suspect]
     Active Substance: OCRELIZUMAB
     Route: 042
     Dates: start: 20220317, end: 20220317
  5. OCRELIZUMAB [Suspect]
     Active Substance: OCRELIZUMAB
     Route: 042
     Dates: start: 20230406, end: 20230406
  6. OCRELIZUMAB [Suspect]
     Active Substance: OCRELIZUMAB
     Route: 042
     Dates: start: 20210114, end: 20210114
  7. OCRELIZUMAB [Suspect]
     Active Substance: OCRELIZUMAB
     Route: 042
     Dates: start: 20190801, end: 20190801
  8. OCRELIZUMAB [Suspect]
     Active Substance: OCRELIZUMAB
     Route: 042
     Dates: start: 20190719, end: 20190719
  9. OCRELIZUMAB [Suspect]
     Active Substance: OCRELIZUMAB
     Route: 042
     Dates: start: 20210909, end: 20210909
  10. OCRELIZUMAB [Suspect]
     Active Substance: OCRELIZUMAB
     Route: 042
     Dates: start: 20220915, end: 20220915
  11. OCRELIZUMAB [Suspect]
     Active Substance: OCRELIZUMAB
     Route: 042
     Dates: start: 20230406, end: 20230406
  12. MIRENA [Concomitant]
     Active Substance: LEVONORGESTREL
     Indication: Prophylaxis
     Route: 067
     Dates: start: 20190726
  13. TRILEPTAL [Concomitant]
     Active Substance: OXCARBAZEPINE
     Indication: Epilepsy
     Route: 048
     Dates: start: 2007, end: 20210818
  14. TRILEPTAL [Concomitant]
     Active Substance: OXCARBAZEPINE
     Route: 048
     Dates: start: 2007
  15. PREDNISOLONE [Concomitant]
     Active Substance: PREDNISOLONE
     Indication: Premedication
     Route: 042
     Dates: start: 20190719, end: 20190719
  16. PREDNISOLONE [Concomitant]
     Active Substance: PREDNISOLONE
     Route: 042
     Dates: start: 20200117, end: 20200117
  17. PREDNISOLONE [Concomitant]
     Active Substance: PREDNISOLONE
     Route: 042
     Dates: start: 20190801, end: 20190801
  18. PREDNISOLONE [Concomitant]
     Active Substance: PREDNISOLONE
     Route: 042
     Dates: start: 20200117, end: 20200117
  19. PREDNISOLONE [Concomitant]
     Active Substance: PREDNISOLONE
     Route: 042
     Dates: start: 20200716, end: 20200716
  20. PREDNISOLONE [Concomitant]
     Active Substance: PREDNISOLONE
     Route: 042
     Dates: start: 20210114, end: 20210114
  21. PREDNISOLONE [Concomitant]
     Active Substance: PREDNISOLONE
     Route: 042
     Dates: start: 20210909, end: 20210909
  22. PREDNISOLONE [Concomitant]
     Active Substance: PREDNISOLONE
     Dates: start: 20220317, end: 20220317
  23. PREDNISOLONE [Concomitant]
     Active Substance: PREDNISOLONE
     Dates: start: 20220915, end: 20220915
  24. PREDNISOLONE [Concomitant]
     Active Substance: PREDNISOLONE
     Dates: start: 20230406, end: 20230406
  25. CLEMASTINE FUMARATE [Concomitant]
     Active Substance: CLEMASTINE FUMARATE
     Indication: Premedication
     Route: 042
     Dates: start: 20190719, end: 20190719
  26. CLEMASTINE FUMARATE [Concomitant]
     Active Substance: CLEMASTINE FUMARATE
     Route: 042
     Dates: start: 20190801, end: 20190801
  27. CLEMASTINE FUMARATE [Concomitant]
     Active Substance: CLEMASTINE FUMARATE
     Route: 042
     Dates: start: 20200117, end: 20200117
  28. CLEMASTINE FUMARATE [Concomitant]
     Active Substance: CLEMASTINE FUMARATE
     Route: 042
     Dates: start: 20200716, end: 20200716
  29. CLEMASTINE FUMARATE [Concomitant]
     Active Substance: CLEMASTINE FUMARATE
     Route: 042
     Dates: start: 20210114, end: 20210114
  30. CLEMASTINE FUMARATE [Concomitant]
     Active Substance: CLEMASTINE FUMARATE
     Route: 042
     Dates: start: 20210909, end: 20210909
  31. CLEMASTINE FUMARATE [Concomitant]
     Active Substance: CLEMASTINE FUMARATE
     Dates: start: 20220317, end: 20220317
  32. CLEMASTINE FUMARATE [Concomitant]
     Active Substance: CLEMASTINE FUMARATE
     Dosage: ONCE BEFORE INFUSION
     Route: 042
     Dates: start: 20220915, end: 20220915
  33. CLEMASTINE FUMARATE [Concomitant]
     Active Substance: CLEMASTINE FUMARATE
     Dosage: ONCE BEFORE INFUSION
     Route: 042
     Dates: start: 20230406, end: 20230406
  34. ACETAMINOPHEN [Concomitant]
     Active Substance: ACETAMINOPHEN
     Indication: Premedication
     Route: 048
     Dates: start: 20190719, end: 20190719
  35. ACETAMINOPHEN [Concomitant]
     Active Substance: ACETAMINOPHEN
     Route: 048
     Dates: start: 20190801, end: 20190801
  36. ACETAMINOPHEN [Concomitant]
     Active Substance: ACETAMINOPHEN
     Route: 048
     Dates: start: 20200117, end: 20200117
  37. ACETAMINOPHEN [Concomitant]
     Active Substance: ACETAMINOPHEN
     Route: 048
     Dates: start: 20200716, end: 20200716
  38. ACETAMINOPHEN [Concomitant]
     Active Substance: ACETAMINOPHEN
     Route: 048
     Dates: start: 20210114, end: 20210114
  39. ACETAMINOPHEN [Concomitant]
     Active Substance: ACETAMINOPHEN
     Route: 048
     Dates: start: 20210909, end: 20210909
  40. ACETAMINOPHEN [Concomitant]
     Active Substance: ACETAMINOPHEN
     Route: 048
     Dates: start: 20220317, end: 20220317
  41. ACETAMINOPHEN [Concomitant]
     Active Substance: ACETAMINOPHEN
     Dosage: ONCE BEFORE INFUSION
     Route: 048
     Dates: start: 20220915, end: 20220915
  42. ACETAMINOPHEN [Concomitant]
     Active Substance: ACETAMINOPHEN
     Dosage: ONCE BEFORE INFUSION
     Route: 048
     Dates: start: 20230406, end: 20230406
  43. ZANTAC [Concomitant]
     Active Substance: RANITIDINE HYDROCHLORIDE
     Indication: Premedication
     Route: 048
     Dates: start: 20190719, end: 20190719
  44. ZANTAC [Concomitant]
     Active Substance: RANITIDINE HYDROCHLORIDE
     Route: 048
     Dates: start: 20190801, end: 20190801

REACTIONS (5)
  - Headache [Not Recovered/Not Resolved]
  - Dry skin [Recovered/Resolved]
  - Nasopharyngitis [Recovered/Resolved]
  - Sinus disorder [Not Recovered/Not Resolved]
  - Eczema [Not Recovered/Not Resolved]

NARRATIVE: CASE EVENT DATE: 20190901
